FAERS Safety Report 7614061-X (Version None)
Quarter: 2011Q3

REPORT INFORMATION
  Report Type: 
  Country: None (occurrence: None)
  Receive Date: 20110708
  Receipt Date: 20110704
  Transmission Date: 20111222
  Serious: Yes (Life-Threatening, Hospitalization)
  Sender: FDA-Public Use
  Company Number: 2011SP007768

PATIENT
  Age: 30 Year
  Sex: Male

DRUGS (2)
  1. TEMODAL [Suspect]
     Indication: GLIOBLASTOMA
     Dosage: PO
     Route: 048
     Dates: start: 20110401
  2. TEMODAL [Suspect]
     Indication: GLIOBLASTOMA
     Dosage: PO
     Route: 048
     Dates: start: 20101001

REACTIONS (5)
  - CELLULITIS [None]
  - PELVIC INFECTION [None]
  - DYSURIA [None]
  - NECROTISING FASCIITIS [None]
  - SEPSIS [None]
